FAERS Safety Report 24302170 (Version 1)
Quarter: 2024Q3

REPORT INFORMATION
  Report Type: Spontaneous
  Country: CN (occurrence: CN)
  Receive Date: 20240910
  Receipt Date: 20240910
  Transmission Date: 20241016
  Serious: Yes (Hospitalization, Other)
  Sender: VIIV
  Company Number: CN-ViiV Healthcare Limited-CN2024APC109652

PATIENT

DRUGS (1)
  1. RETROVIR [Suspect]
     Active Substance: ZIDOVUDINE
     Indication: HIV infection
     Dosage: 1.5 ML, BID
     Route: 048
     Dates: start: 20240729, end: 20240824

REACTIONS (4)
  - Pyrexia [Unknown]
  - Sepsis neonatal [Unknown]
  - Liver function test abnormal [Unknown]
  - Respiratory tract infection [Unknown]

NARRATIVE: CASE EVENT DATE: 20240801
